FAERS Safety Report 21189432 (Version 3)
Quarter: 2023Q1

REPORT INFORMATION
  Report Type: Spontaneous
  Country: IT (occurrence: IT)
  Receive Date: 20220809
  Receipt Date: 20230228
  Transmission Date: 20230418
  Serious: Yes (Other)
  Sender: FDA-Public Use
  Company Number: IT-002147023-NVSC2022IT162676

PATIENT
  Age: 32 Year
  Sex: Female

DRUGS (10)
  1. ADALIMUMAB [Suspect]
     Active Substance: ADALIMUMAB
     Indication: Iridocyclitis
     Dosage: 40 MILLIGRAM, Q2W,SOLUTION FOR INJECTION
     Route: 058
     Dates: start: 202007, end: 2021
  2. CERTOLIZUMAB [Suspect]
     Active Substance: CERTOLIZUMAB
     Indication: Product used for unknown indication
     Dosage: UNK
     Route: 065
  3. SECUKINUMAB [Suspect]
     Active Substance: SECUKINUMAB
     Indication: Iridocyclitis
     Dosage: 150 MILLIGRAM, MONTHLY
     Route: 065
  4. PREDNISONE [Concomitant]
     Active Substance: PREDNISONE
     Indication: Iridocyclitis
     Dosage: 12.5 MG/DAY WITH DECREASE OF DOSAGE UP TO 6.25
     Route: 065
  5. PREDNISONE [Concomitant]
     Active Substance: PREDNISONE
     Dosage: 5 MILLIGRAM, FOR FOUR DAYS A WEEK
     Route: 065
     Dates: start: 202207
  6. PREDNISONE [Concomitant]
     Active Substance: PREDNISONE
     Dosage: 6.25 MILLIGRAM, QD
     Route: 065
  7. CYCLOSPORINE [Concomitant]
     Active Substance: CYCLOSPORINE
     Indication: Iridocyclitis
     Dosage: UNK
     Route: 065
  8. HYDROXYCHLOROQUINE [Concomitant]
     Active Substance: HYDROXYCHLOROQUINE
     Indication: Iridocyclitis
     Dosage: UNK
     Route: 065
  9. AZATHIOPRINE [Concomitant]
     Active Substance: AZATHIOPRINE
     Indication: Iridocyclitis
     Dosage: UNK
     Route: 065
  10. METHOTREXATE [Concomitant]
     Active Substance: METHOTREXATE
     Indication: Iridocyclitis
     Dosage: UNK
     Route: 065

REACTIONS (20)
  - Temporomandibular joint syndrome [Unknown]
  - Ankylosing spondylitis [Unknown]
  - Peripheral spondyloarthritis [Recovering/Resolving]
  - Neck pain [Unknown]
  - Joint swelling [Unknown]
  - Back pain [Unknown]
  - Spinal pain [Unknown]
  - Axial spondyloarthritis [Recovering/Resolving]
  - Sacroiliitis [Unknown]
  - Arthralgia [Unknown]
  - Sacroiliac joint dysfunction [Unknown]
  - Red blood cell sedimentation rate increased [Unknown]
  - Adnexa uteri cyst [Unknown]
  - C-reactive protein increased [Unknown]
  - Ovarian cyst [Unknown]
  - Post-traumatic neck syndrome [Unknown]
  - Mental disorder [Unknown]
  - Maternal exposure during pregnancy [Recovered/Resolved]
  - Off label use [Unknown]
  - Drug ineffective [Unknown]

NARRATIVE: CASE EVENT DATE: 20200701
